FAERS Safety Report 23048630 (Version 1)
Quarter: 2023Q4

REPORT INFORMATION
  Report Type: Spontaneous
  Country: CA (occurrence: CA)
  Receive Date: 20231010
  Receipt Date: 20231010
  Transmission Date: 20240110
  Serious: Yes (Other)
  Sender: FDA-Public Use
  Company Number: CA-SANDOZ-SDZ2023CA038615

PATIENT
  Age: 85 Year
  Sex: Male
  Weight: 106.36 kg

DRUGS (2)
  1. CARBAMAZEPINE [Suspect]
     Active Substance: CARBAMAZEPINE
     Indication: Seizure prophylaxis
     Dosage: 400 MG, QD (THERAPY DURATION: 11 YEARS)
     Route: 048
  2. CARBAMAZEPINE [Suspect]
     Active Substance: CARBAMAZEPINE
     Dosage: 600 MG, QD (THERAPY DURATION: 11 YEARS)
     Route: 048

REACTIONS (2)
  - Presyncope [Recovering/Resolving]
  - Drug ineffective [Recovering/Resolving]
